FAERS Safety Report 23655578 (Version 3)
Quarter: 2024Q2

REPORT INFORMATION
  Report Type: Spontaneous
  Country: US (occurrence: US)
  Receive Date: 20240321
  Receipt Date: 20240408
  Transmission Date: 20240715
  Serious: Yes (Death)
  Sender: FDA-Public Use
  Company Number: US-TEVA-VS-3171124

PATIENT
  Age: 30 Year
  Sex: Female

DRUGS (4)
  1. DEXAMETHASONE [Suspect]
     Active Substance: DEXAMETHASONE
     Indication: Angiocentric lymphoma
     Route: 065
  2. CISPLATIN [Suspect]
     Active Substance: CISPLATIN
     Indication: Angiocentric lymphoma
     Route: 065
  3. PEGASPARGASE [Suspect]
     Active Substance: PEGASPARGASE
     Indication: Angiocentric lymphoma
     Route: 065
  4. GEMCITABINE [Suspect]
     Active Substance: GEMCITABINE
     Indication: Angiocentric lymphoma
     Route: 065

REACTIONS (1)
  - Drug ineffective [Fatal]
